FAERS Safety Report 9733509 (Version 6)
Quarter: 2014Q2

REPORT INFORMATION
  Report Type: Spontaneous
  Country: JP (occurrence: JP)
  Receive Date: 20131205
  Receipt Date: 20140502
  Transmission Date: 20141212
  Serious: Yes (Hospitalization)
  Sender: FDA-Public Use
  Company Number: JP-B.I. PHARMACEUTICALS,INC./RIDGEFIELD-2013-BI-34420NB

PATIENT
  Age: 69 Year
  Sex: Male
  Weight: 69 kg

DRUGS (9)
  1. PRAZAXA [Suspect]
     Indication: ATRIAL FIBRILLATION
     Dosage: 220 MG
     Route: 048
     Dates: start: 20120222, end: 20131114
  2. ALDACTONE A [Concomitant]
     Dosage: 25 MG
     Route: 048
     Dates: start: 20131016
  3. LUPRAC [Concomitant]
     Dosage: 4 MG
     Route: 048
     Dates: start: 20131016
  4. AMLODIPINE [Concomitant]
     Dosage: 10 MG
     Route: 048
     Dates: start: 20120223
  5. RYTHMODAN [Concomitant]
     Dosage: 200 MG
     Route: 048
  6. TENORMIN [Concomitant]
     Dosage: 25 MG
     Route: 048
     Dates: start: 20120223
  7. OLMETEC [Concomitant]
     Dosage: 40 MG
     Route: 048
     Dates: start: 20120223
  8. RABEPRAZOLE NA [Concomitant]
     Dosage: 10 MG
     Route: 048
     Dates: start: 20120823
  9. BERIZYM / PANCREATIC ENZYME COMBINED DRUG [Concomitant]
     Dosage: 1 G
     Route: 048
     Dates: start: 20120223

REACTIONS (6)
  - Generalised oedema [Not Recovered/Not Resolved]
  - Malnutrition [Not Recovered/Not Resolved]
  - Oesophageal ulcer [Recovered/Resolved]
  - Nephrotic syndrome [Not Recovered/Not Resolved]
  - Dyspepsia [Recovered/Resolved]
  - Chest discomfort [Recovered/Resolved]
